FAERS Safety Report 24553625 (Version 1)
Quarter: 2024Q4

REPORT INFORMATION
  Report Type: Spontaneous
  Country: US (occurrence: US)
  Receive Date: 20241028
  Receipt Date: 20241028
  Transmission Date: 20250115
  Serious: No
  Sender: ROCHE
  Company Number: US-ROCHE-3538958

PATIENT
  Sex: Female
  Weight: 76.2 kg

DRUGS (2)
  1. NUTROPIN AQ [Suspect]
     Active Substance: SOMATROPIN
     Indication: Hypopituitarism
     Dosage: NIGHTS
     Route: 058
     Dates: start: 1982
  2. NUTROPIN AQ [Suspect]
     Active Substance: SOMATROPIN
     Indication: Hypothyroidism

REACTIONS (2)
  - Ill-defined disorder [Unknown]
  - Memory impairment [Unknown]
